FAERS Safety Report 5275511-X (Version None)
Quarter: 2007Q1

REPORT INFORMATION
  Report Type: 
  Country: None (occurrence: None)
  Receive Date: 20070326
  Receipt Date: 20070315
  Transmission Date: 20070707
  Serious: Yes (Hospitalization, Disabling)
  Sender: FDA-Public Use
  Company Number: GB-AVENTIS-200712390GDDC

PATIENT
  Age: 40 Year
  Sex: Female

DRUGS (4)
  1. METRONIDAZOLE [Suspect]
     Indication: PERIANAL FUNGAL INFECTION
     Route: 048
     Dates: start: 20070223, end: 20070301
  2. ASPIRIN [Concomitant]
     Route: 048
     Dates: start: 20070101
  3. CIPROFLOXACIN [Concomitant]
     Indication: PERIANAL FUNGAL INFECTION
     Route: 048
     Dates: start: 20070225
  4. ACETAMINOPHEN [Concomitant]
     Indication: PAIN
     Route: 048
     Dates: start: 20070223

REACTIONS (2)
  - EPILEPSY [None]
  - LOSS OF CONSCIOUSNESS [None]
